FAERS Safety Report 18076636 (Version 2)
Quarter: 2020Q3

REPORT INFORMATION
  Report Type: Report from Study
  Country: BR (occurrence: BR)
  Receive Date: 20200728
  Receipt Date: 20200902
  Transmission Date: 20201103
  Serious: Yes (Other)
  Sender: FDA-Public Use
  Company Number: BR-AMGEN-BRACT2020121097

PATIENT
  Age: 32 Year
  Sex: Female

DRUGS (6)
  1. DIPYRONE [Suspect]
     Active Substance: DIPYRONE
     Indication: PRODUCT USED FOR UNKNOWN INDICATION
     Dosage: UNK
     Route: 042
     Dates: start: 20200709
  2. DRAMIN B6 [Suspect]
     Active Substance: DIMENHYDRINATE\PYRIDOXINE HYDROCHLORIDE
     Indication: PRODUCT USED FOR UNKNOWN INDICATION
     Dosage: UNK
     Route: 042
     Dates: start: 20200709
  3. PASURTA [Suspect]
     Active Substance: ERENUMAB
     Dosage: UNK
     Route: 065
     Dates: start: 20200715
  4. TRAMADOL. [Suspect]
     Active Substance: TRAMADOL
     Indication: PRODUCT USED FOR UNKNOWN INDICATION
     Dosage: UNK
     Route: 042
     Dates: start: 20200709
  5. PASURTA [Suspect]
     Active Substance: ERENUMAB
     Indication: MIGRAINE
     Dosage: UNK
     Route: 065
  6. DEXAMETHASONE. [Suspect]
     Active Substance: DEXAMETHASONE
     Indication: PRODUCT USED FOR UNKNOWN INDICATION
     Dosage: UNK
     Route: 042
     Dates: start: 20200709

REACTIONS (4)
  - Mouth ulceration [Unknown]
  - Migraine [Not Recovered/Not Resolved]
  - Drug ineffective [Not Recovered/Not Resolved]
  - Gastric ulcer [Unknown]

NARRATIVE: CASE EVENT DATE: 20200622
